FAERS Safety Report 5490121-7 (Version None)
Quarter: 2007Q4

REPORT INFORMATION
  Report Type: 
  Country: None (occurrence: None)
  Receive Date: 20071018
  Receipt Date: 20071016
  Transmission Date: 20080405
  Serious: No
  Sender: FDA-Public Use
  Company Number: US-BOEHRINGER INGELHEIM PHARMACEUTICALS, INC.-2007-BP-19556BP

PATIENT
  Age: 60 Year
  Sex: Male

DRUGS (6)
  1. SPIRIVA [Suspect]
     Indication: CHRONIC OBSTRUCTIVE PULMONARY DISEASE
     Route: 055
     Dates: start: 20040101
  2. PREDNISONE [Concomitant]
     Route: 048
  3. PROTONIX [Concomitant]
  4. RHINOCORT [Concomitant]
  5. LASIX [Concomitant]
  6. OXYGEN [Concomitant]
     Route: 045

REACTIONS (2)
  - CATARACT [None]
  - VISION BLURRED [None]
